FAERS Safety Report 13776520 (Version 2)
Quarter: 2017Q3

REPORT INFORMATION
  Report Type: Spontaneous
  Country: US (occurrence: US)
  Receive Date: 20170721
  Receipt Date: 20170727
  Transmission Date: 20171127
  Serious: Yes (Death, Hospitalization, Other)
  Sender: FDA-Public Use
  Company Number: US-SA-2017SA128477

PATIENT
  Age: 69 Year
  Sex: Female
  Weight: 106.63 kg

DRUGS (11)
  1. ALBUTEROL. [Concomitant]
     Active Substance: ALBUTEROL
     Indication: DYSPNOEA
     Dosage: 4 HOURS AS NEEDED
     Route: 065
  2. FLUTICASONE/SALMETEROL [Concomitant]
     Dosage: DOSE:1 PUFF(S)
     Route: 065
  3. TRAZODONE [Concomitant]
     Active Substance: TRAZODONE HYDROCHLORIDE
     Route: 065
  4. ASPIRIN. [Concomitant]
     Active Substance: ASPIRIN
     Route: 065
  5. CARVEDILOL. [Concomitant]
     Active Substance: CARVEDILOL
     Route: 065
  6. BRILINTA [Concomitant]
     Active Substance: TICAGRELOR
     Route: 065
  7. PLAVIX [Suspect]
     Active Substance: CLOPIDOGREL BISULFATE
     Indication: MYOCARDIAL INFARCTION
     Route: 048
  8. BUPROPION. [Concomitant]
     Active Substance: BUPROPION
     Route: 065
  9. LEVOTHYROXINE. [Concomitant]
     Active Substance: LEVOTHYROXINE
     Route: 065
  10. VENLAFAXINE [Concomitant]
     Active Substance: VENLAFAXINE HYDROCHLORIDE
     Route: 065
  11. SALMETEROL [Concomitant]
     Active Substance: SALMETEROL
     Route: 065

REACTIONS (18)
  - Septic shock [Fatal]
  - Haemorrhage subcutaneous [Unknown]
  - Mental status changes [Unknown]
  - Asthenia [Unknown]
  - Balance disorder [Unknown]
  - Lethargy [Unknown]
  - Contusion [Unknown]
  - Gait inability [Unknown]
  - Agitation [Unknown]
  - Impaired quality of life [Unknown]
  - Depressive symptom [Unknown]
  - Amnesia [Unknown]
  - Confusional state [Unknown]
  - Treatment noncompliance [Unknown]
  - Hypokalaemia [Unknown]
  - Psychotic disorder [Unknown]
  - Hallucination [Unknown]
  - Hallucinations, mixed [Unknown]
